FAERS Safety Report 17090103 (Version 2)
Quarter: 2019Q4

REPORT INFORMATION
  Report Type: Spontaneous
  Country: US (occurrence: US)
  Receive Date: 20191129
  Receipt Date: 20191231
  Transmission Date: 20200122
  Serious: No
  Sender: FDA-Public Use
  Company Number: US-UCBSA-2018017596

PATIENT
  Sex: Female

DRUGS (1)
  1. KEPPRA [Suspect]
     Active Substance: LEVETIRACETAM
     Indication: EPILEPSY

REACTIONS (9)
  - Hostility [Unknown]
  - Weight increased [Unknown]
  - Confusional state [Unknown]
  - Dysphemia [Unknown]
  - Parosmia [Unknown]
  - Anxiety [Unknown]
  - Hyperacusis [Unknown]
  - Depression [Unknown]
  - Nervousness [Unknown]
